FAERS Safety Report 6673138-6 (Version None)
Quarter: 2010Q2

REPORT INFORMATION
  Report Type: 
  Country: None (occurrence: None)
  Receive Date: 20100408
  Receipt Date: 20100407
  Transmission Date: 20101027
  Serious: Yes (Hospitalization)
  Sender: FDA-Public Use
  Company Number: GXKR2010DE01874

PATIENT
  Age: 66 Year
  Sex: Male
  Weight: 86 kg

DRUGS (9)
  1. XIPAMIDE (NGX) [Suspect]
     Indication: RENAL IMPAIRMENT
     Dosage: 20 MG, QD
     Route: 048
     Dates: start: 20091101, end: 20100121
  2. BISOPROLOL (NGX) [Suspect]
     Dosage: 5 MG/DAILY
     Route: 048
     Dates: start: 20091101
  3. EXFORGE [Suspect]
     Indication: HYPERTENSION
     Dosage: 1 DF, QD
     Route: 048
     Dates: start: 20091101, end: 20100121
  4. IMBUN [Suspect]
     Indication: PAIN
     Dosage: 800 MG, BID
     Route: 048
     Dates: start: 20100107, end: 20100121
  5. TORSEMIDE [Suspect]
     Indication: HYPERTENSION
     Dosage: 10 MG/DAILY
     Route: 048
     Dates: start: 20091101, end: 20100121
  6. ALLOPURINOL [Concomitant]
  7. SIMVASTATIN [Concomitant]
  8. DEKRISTOL [Concomitant]
  9. SEVREDOL [Concomitant]

REACTIONS (1)
  - RENAL FAILURE ACUTE [None]
